FAERS Safety Report 8596034 (Version 4)
Quarter: 2014Q1

REPORT INFORMATION
  Report Type: Spontaneous
  Country: US (occurrence: US)
  Receive Date: 20120605
  Receipt Date: 20140114
  Transmission Date: 20141002
  Serious: Yes (Hospitalization, Other)
  Sender: FDA-Public Use
  Company Number: US-ASTRAZENECA-2012SE35612

PATIENT
  Age: 45 Year
  Sex: Female
  Weight: 150.6 kg

DRUGS (15)
  1. NEXIUM [Suspect]
     Indication: GASTROOESOPHAGEAL REFLUX DISEASE
     Dosage: ONCE A DAY
     Route: 048
     Dates: start: 2004, end: 20080227
  2. NEXIUM [Suspect]
     Indication: GASTROOESOPHAGEAL REFLUX DISEASE
     Route: 048
     Dates: start: 20060522
  3. NEXIUM [Suspect]
     Indication: GASTROOESOPHAGEAL REFLUX DISEASE
     Route: 048
     Dates: start: 20060522, end: 200802
  4. PRILOSEC [Suspect]
     Route: 048
     Dates: start: 200301, end: 200602
  5. AMITRIPTYLINE [Concomitant]
     Dates: start: 20060309
  6. TRAMADOL HCL [Concomitant]
     Indication: MUSCULOSKELETAL CHEST PAIN
     Dates: start: 20060522
  7. AMOXICILLIN [Concomitant]
     Dates: start: 20070226
  8. TUMS [Concomitant]
  9. DIGOXIN [Concomitant]
     Indication: HEART RATE
  10. RANITIDINE [Concomitant]
     Indication: GASTROOESOPHAGEAL REFLUX DISEASE
  11. PROTONIX [Concomitant]
     Indication: GASTROOESOPHAGEAL REFLUX DISEASE
  12. LASIX [Concomitant]
     Indication: LOCAL SWELLING
  13. MOBIC [Concomitant]
     Indication: INFLAMMATION
  14. PREDNISONE [Concomitant]
     Dates: start: 20080423
  15. FLUTICASONE [Concomitant]
     Dates: start: 20080713

REACTIONS (7)
  - Chest pain [Unknown]
  - Gallbladder disorder [Unknown]
  - Burning sensation [Unknown]
  - Osteoporosis [Unknown]
  - Rib fracture [Unknown]
  - Foot fracture [Unknown]
  - Cough [Unknown]
